FAERS Safety Report 24638390 (Version 1)
Quarter: 2024Q4

REPORT INFORMATION
  Report Type: Spontaneous
  Country: US (occurrence: None)
  Receive Date: 20241119
  Receipt Date: 20241119
  Transmission Date: 20250115
  Serious: Yes (Life-Threatening)
  Sender: Public
  Company Number: None

PATIENT
  Age: 73 Year
  Sex: Male

DRUGS (1)
  1. WARFARIN SODIUM [Suspect]
     Active Substance: WARFARIN SODIUM

REACTIONS (6)
  - Haemorrhage [None]
  - Cerebral haemorrhage [None]
  - Haemorrhage intracranial [None]
  - Conjunctival haemorrhage [None]
  - Subdural haematoma [None]
  - Cerebral mass effect [None]

NARRATIVE: CASE EVENT DATE: 20240529
